FAERS Safety Report 4501136-7 (Version None)
Quarter: 2004Q4

REPORT INFORMATION
  Report Type: 
  Country: None (occurrence: None)
  Receive Date: 20041115
  Receipt Date: 20041104
  Transmission Date: 20050328
  Serious: Yes (Hospitalization)
  Sender: FDA-Public Use
  Company Number: JP-JNJFOC-20041101074

PATIENT
  Age: 71 Year
  Sex: Female

DRUGS (9)
  1. LEVOFLOXACIN [Suspect]
  2. THEOPHYLLINE [Interacting]
     Route: 065
  3. ACETYLCYSTEINE [Concomitant]
     Route: 065
  4. FLUTICASONE PROPIONATE [Concomitant]
     Route: 065
  5. SALBUTAMOL [Concomitant]
     Route: 065
  6. IPRATROPIUM BROMIDE [Concomitant]
     Route: 065
  7. DILTIAZEM [Concomitant]
     Route: 065
  8. CARBASALATE CALCIUM [Concomitant]
     Route: 065
  9. ISOSORBIDE DINITRATE [Concomitant]
     Route: 065

REACTIONS (7)
  - COMA [None]
  - CONVULSION [None]
  - CREATININE RENAL CLEARANCE DECREASED [None]
  - DRUG INTERACTION [None]
  - DRUG LEVEL ABOVE THERAPEUTIC [None]
  - DRUG LEVEL DECREASED [None]
  - POSTICTAL STATE [None]
